FAERS Safety Report 7629585-9 (Version None)
Quarter: 2011Q3

REPORT INFORMATION
  Report Type: 
  Country: None (occurrence: None)
  Receive Date: 20110722
  Receipt Date: 20110712
  Transmission Date: 20111222
  Serious: Yes (Hospitalization)
  Sender: FDA-Public Use
  Company Number: US-ROCHE-664295

PATIENT
  Sex: Male
  Weight: 109 kg

DRUGS (11)
  1. CELEXA [Suspect]
     Route: 065
  2. KLOR-CON [Concomitant]
     Dates: start: 20090214
  3. PEGINTERFERON ALFA-2A [Suspect]
     Dosage: LAST DOSE PRIOR TO SAE: 13 OCTOBER 2009.FORM REPORTED AS: PREFILLED SYRINGES.
     Route: 058
     Dates: start: 20090127, end: 20091018
  4. DARVOCET-N 50 [Concomitant]
     Dosage: TOTAL DAILY DOSE:100/650 MG
  5. RIBAVIRIN [Suspect]
     Dosage: FREQUENCY REPORTED AS: QD.(EVERY DAY); LAST DOSE PRIOR TO SAE: 13 OCT 2009.
     Route: 048
     Dates: start: 20090127, end: 20091018
  6. TOPREL [Concomitant]
     Dosage: DRUG REPORTED AS: TOPREL XL
     Dates: start: 20090214
  7. DILTIAZEM HYDROCHLORIDE [Concomitant]
  8. ASPIRIN [Concomitant]
     Dates: start: 20090214
  9. CELEXA [Suspect]
     Route: 065
  10. AVALIDE [Concomitant]
     Dates: start: 20090214
  11. AMBIEN [Suspect]
     Route: 065

REACTIONS (4)
  - SYNCOPE [None]
  - DELIRIUM [None]
  - RIB FRACTURE [None]
  - STERNAL FRACTURE [None]
